FAERS Safety Report 5497306-4 (Version None)
Quarter: 2007Q4

REPORT INFORMATION
  Report Type: 
  Country: None (occurrence: None)
  Receive Date: 20071025
  Receipt Date: 20061113
  Transmission Date: 20080405
  Serious: Yes (Other)
  Sender: FDA-Public Use
  Company Number: A0621672A

PATIENT
  Age: 55 Year
  Sex: Female

DRUGS (8)
  1. ADVAIR DISKUS 100/50 [Suspect]
     Indication: ASTHMA
     Dosage: 1PUFF TWICE PER DAY
     Route: 055
     Dates: start: 20021101
  2. LEXAPRO [Concomitant]
  3. METFORMIN [Concomitant]
  4. ARTHROTEC [Concomitant]
  5. DYAZIDE [Concomitant]
  6. PREVACID [Concomitant]
  7. PRAVACHOL [Concomitant]
  8. LEVOXYL [Concomitant]

REACTIONS (3)
  - ASTHMA [None]
  - DRUG INEFFECTIVE [None]
  - PHARMACEUTICAL PRODUCT COMPLAINT [None]
